FAERS Safety Report 4744923-2 (Version None)
Quarter: 2005Q3

REPORT INFORMATION
  Report Type: 
  Country: None (occurrence: None)
  Receive Date: 20050811
  Receipt Date: 20050729
  Transmission Date: 20060218
  Serious: Yes (Hospitalization)
  Sender: FDA-Public Use
  Company Number: 2005BI003887

PATIENT
  Age: 40 Year
  Sex: Male
  Weight: 68.0396 kg

DRUGS (11)
  1. AVONEX [Suspect]
     Indication: MULTIPLE SCLEROSIS
     Dosage: 30 UG;QW;IM
     Route: 030
     Dates: start: 20020501, end: 20050101
  2. AVONEX [Suspect]
     Indication: MULTIPLE SCLEROSIS
     Dosage: 30 UG;QW;IM
     Route: 030
     Dates: start: 20050101
  3. GEMFIBROZIL [Concomitant]
  4. ZONEGRAN [Concomitant]
  5. DEPAKOTE [Concomitant]
  6. LORTAB [Concomitant]
  7. FOLACAPS [GENERAL HEALTH] [Concomitant]
  8. INDERAL [Concomitant]
  9. ES TYLENOL [Concomitant]
  10. VITAMIN B COMPLEX CAP [Concomitant]
  11. CENTRUM [Concomitant]

REACTIONS (8)
  - AUTOMATIC BLADDER [None]
  - CEREBROVASCULAR ACCIDENT [None]
  - GASTRIC DISORDER [None]
  - GLIOSIS [None]
  - INSOMNIA [None]
  - MULTIPLE SCLEROSIS RELAPSE [None]
  - PRURITUS [None]
  - WEIGHT DECREASED [None]
